FAERS Safety Report 10667693 (Version 1)
Quarter: 2014Q4

REPORT INFORMATION
  Report Type: Spontaneous
  Country: US (occurrence: US)
  Receive Date: 20141222
  Receipt Date: 20141222
  Transmission Date: 20150529
  Serious: Yes (Disabling)
  Sender: FDA-Public Use
  Company Number: US-GLAXOSMITHKLINE-US2014GSK038240

PATIENT
  Sex: Male

DRUGS (2)
  1. ANTICONVULSANT [Suspect]
     Active Substance: UNSPECIFIED INGREDIENT
     Indication: SEIZURE
  2. LAMICTAL [Suspect]
     Active Substance: LAMOTRIGINE
     Indication: SEIZURE
     Dosage: 100 MG, U

REACTIONS (1)
  - Amnesia [Not Recovered/Not Resolved]
